APPROVED DRUG PRODUCT: DIPYRIDAMOLE
Active Ingredient: DIPYRIDAMOLE
Strength: 50MG
Dosage Form/Route: TABLET;ORAL
Application: A089426 | Product #001
Applicant: PUREPAC PHARMACEUTICAL CO
Approved: Jul 12, 1990 | RLD: No | RS: No | Type: DISCN